FAERS Safety Report 6043595-7 (Version None)
Quarter: 2009Q1

REPORT INFORMATION
  Report Type: 
  Country: None (occurrence: None)
  Receive Date: 20090115
  Receipt Date: 20081230
  Transmission Date: 20090719
  Serious: Yes (Hospitalization)
  Sender: FDA-Public Use
  Company Number: 2008S1022926

PATIENT
  Age: 32 Year
  Sex: Male

DRUGS (8)
  1. CLARITHROMYCIN (CLARITHROMYCIN) [Suspect]
     Indication: LOWER RESPIRATORY TRACT INFECTION
     Dosage: 500 MG
  2. QUETIAPINE FUMARATE [Suspect]
     Indication: PSYCHOTIC BEHAVIOUR
     Dosage: 50 MG; NULL_1_DAY;  700 MG; NULL_1_DAY
  3. VALPROIC ACID (VALPROIC ACID) [Concomitant]
  4. OMEPRAZOLE [Concomitant]
  5. METFORIN (METFORMIN) [Concomitant]
  6. GLYBURIDE [Concomitant]
  7. EZETIMIBE [Concomitant]
  8. SULTAMICILLIN (SULTAMICILLIN) [Concomitant]

REACTIONS (7)
  - DEPRESSED LEVEL OF CONSCIOUSNESS [None]
  - DRUG INTERACTION [None]
  - DRUG LEVEL INCREASED [None]
  - LOWER RESPIRATORY TRACT INFECTION [None]
  - PNEUMONIA [None]
  - RESPIRATORY DEPRESSION [None]
  - RESPIRATORY FAILURE [None]
